FAERS Safety Report 9827426 (Version 1)
Quarter: 2013Q4

REPORT INFORMATION
  Report Type: Spontaneous
  Country: US (occurrence: None)
  Receive Date: 20131115
  Receipt Date: 20131115
  Transmission Date: 20140711
  Serious: Yes (Hospitalization)
  Sender: FDA-Public Use
  Company Number: 2013P1014466

PATIENT
  Sex: Female

DRUGS (2)
  1. INFUMORPH [Suspect]
     Route: 037
  2. BUPIVICAINE [Suspect]
     Route: 037

REACTIONS (1)
  - Overdose [None]
